FAERS Safety Report 21621208 (Version 2)
Quarter: 2023Q2

REPORT INFORMATION
  Report Type: Spontaneous
  Country: DE (occurrence: DE)
  Receive Date: 20221121
  Receipt Date: 20230420
  Transmission Date: 20230721
  Serious: Yes (Hospitalization)
  Sender: FDA-Public Use
  Company Number: DE-SAMSUNG BIOEPIS-SB-2022-28833

PATIENT
  Age: 53 Year
  Sex: Female

DRUGS (2)
  1. ETANERCEPT [Suspect]
     Active Substance: ETANERCEPT
     Indication: Axial spondyloarthritis
     Route: 065
     Dates: start: 20220411, end: 20220612
  2. NAPROXEN [Concomitant]
     Active Substance: NAPROXEN
     Indication: Product used for unknown indication
     Route: 065
     Dates: start: 20170101

REACTIONS (1)
  - Rosacea [Recovered/Resolved]

NARRATIVE: CASE EVENT DATE: 20220612
